FAERS Safety Report 9844980 (Version 1)
Quarter: 2014Q1

REPORT INFORMATION
  Report Type: Spontaneous
  Country: US (occurrence: None)
  Receive Date: 20140122
  Receipt Date: 20140122
  Transmission Date: 20141002
  Serious: Yes (Death)
  Sender: FDA-Public Use
  Company Number: 2014AP000358

PATIENT
  Age: 39 Year
  Sex: Male

DRUGS (3)
  1. TRAMADOL HYDROCHLORIDE [Suspect]
     Route: 048
  2. CARBAMAZEPINE [Suspect]
     Route: 048
  3. ACETAMINOPHEN [Suspect]
     Route: 048

REACTIONS (1)
  - Completed suicide [None]
